FAERS Safety Report 15022448 (Version 1)
Quarter: 2018Q2

REPORT INFORMATION
  Report Type: Spontaneous
  Country: FR (occurrence: FR)
  Receive Date: 20180618
  Receipt Date: 20180618
  Transmission Date: 20180711
  Serious: Yes (Hospitalization)
  Sender: FDA-Public Use
  Company Number: IND-FR-009507513-1806FRA004439

PATIENT
  Age: 74 Year
  Sex: Female

DRUGS (3)
  1. THIOCOLCHICOSIDE [Suspect]
     Active Substance: THIOCOLCHICOSIDE
     Indication: MUSCLE SPASMS
     Dosage: 4 MG, QD
     Route: 048
     Dates: start: 20180420, end: 20180430
  2. MONOPROST [Suspect]
     Active Substance: LATANOPROST
     Indication: EYE DISORDER
     Dosage: 1 GTT, QD
     Route: 047
  3. ETORICOXIB [Suspect]
     Active Substance: ETORICOXIB
     Indication: PAIN
     Dosage: 60 MG, QD
     Route: 048
     Dates: start: 20180420, end: 20180430

REACTIONS (1)
  - Optic ischaemic neuropathy [Unknown]

NARRATIVE: CASE EVENT DATE: 20180430
